FAERS Safety Report 18438019 (Version 10)
Quarter: 2021Q3

REPORT INFORMATION
  Report Type: Spontaneous
  Country: US (occurrence: US)
  Receive Date: 20201029
  Receipt Date: 20210817
  Transmission Date: 20211014
  Serious: Yes (Other)
  Sender: FDA-Public Use
  Company Number: US-AKCEA THERAPEUTICS-2020IS001410

PATIENT
  Age: 75 Year
  Sex: Male

DRUGS (4)
  1. TEGSEDI [Suspect]
     Active Substance: INOTERSEN SODIUM
     Indication: HEREDITARY NEUROPATHIC AMYLOIDOSIS
     Route: 058
     Dates: start: 20190730
  2. TEGSEDI [Suspect]
     Active Substance: INOTERSEN SODIUM
     Route: 058
  3. DIFLUNISAL. [Concomitant]
     Active Substance: DIFLUNISAL
     Route: 065
  4. ISSD (INTEGRATED SYRINGE SAFETY DEVICE) [Suspect]
     Active Substance: DEVICE

REACTIONS (16)
  - Blood bilirubin increased [Unknown]
  - Bacterial test positive [Not Recovered/Not Resolved]
  - Nitrite urine present [Unknown]
  - Urine leukocyte esterase positive [Unknown]
  - Glomerulonephritis [Unknown]
  - Proteinuria [Unknown]
  - Dysuria [Unknown]
  - Blood creatinine abnormal [Unknown]
  - Urine protein/creatinine ratio increased [Not Recovered/Not Resolved]
  - Crystal urine present [Unknown]
  - Urinary casts [Unknown]
  - Pollakiuria [Unknown]
  - Urinary occult blood positive [Unknown]
  - Urine ketone body present [Unknown]
  - Red blood cells urine positive [Unknown]
  - Urine abnormality [Unknown]

NARRATIVE: CASE EVENT DATE: 20200825
